FAERS Safety Report 13068882 (Version 16)
Quarter: 2018Q2

REPORT INFORMATION
  Report Type: Report from Study
  Country: US (occurrence: US)
  Receive Date: 20161228
  Receipt Date: 20180628
  Transmission Date: 20180711
  Serious: Yes (Hospitalization)
  Sender: FDA-Public Use
  Company Number: US-ACTELION-A-NJ2016-141273

PATIENT
  Age: 66 Year
  Sex: Female
  Weight: 130.16 kg

DRUGS (11)
  1. TRACLEER [Suspect]
     Active Substance: BOSENTAN
     Indication: PULMONARY HYPERTENSION
     Dosage: 125 MG, BID
     Route: 048
     Dates: start: 20100528
  2. ADCIRCA [Concomitant]
     Active Substance: TADALAFIL
  3. WARFARIN [Concomitant]
     Active Substance: WARFARIN
  4. DILTIAZEM. [Concomitant]
     Active Substance: DILTIAZEM
  5. TRACLEER [Suspect]
     Active Substance: BOSENTAN
     Dosage: 125 MG, BID
     Route: 048
  6. ORENITRAM [Suspect]
     Active Substance: TREPROSTINIL
     Indication: PRODUCT USED FOR UNKNOWN INDICATION
     Dosage: UNK
     Route: 065
     Dates: start: 201612
  7. TYVASO [Concomitant]
     Active Substance: TREPROSTINIL
     Dosage: UNK
     Dates: end: 201612
  8. XARELTO [Concomitant]
     Active Substance: RIVAROXABAN
  9. ELIQUIS [Concomitant]
     Active Substance: APIXABAN
  10. PREDNISONE. [Concomitant]
     Active Substance: PREDNISONE
     Dosage: 2.5 MG, UNK
  11. PREDNISONE. [Concomitant]
     Active Substance: PREDNISONE
     Dosage: 10 MG, UNK

REACTIONS (38)
  - Migraine [Unknown]
  - Weight increased [Unknown]
  - Peripheral swelling [Unknown]
  - Disease progression [Unknown]
  - Dyspnoea [Unknown]
  - Renal disorder [Unknown]
  - Wound [Unknown]
  - Atrial flutter [Unknown]
  - Platelet count decreased [Unknown]
  - Diarrhoea [Unknown]
  - Fatigue [Unknown]
  - Hypotension [Unknown]
  - Impaired gastric emptying [Unknown]
  - Hypophagia [Unknown]
  - Condition aggravated [Unknown]
  - Renal failure [Unknown]
  - Colon cancer [Unknown]
  - Rectal prolapse [Unknown]
  - Dyspnoea exertional [Unknown]
  - Blister [Unknown]
  - Therapy non-responder [Unknown]
  - Atrial fibrillation [Unknown]
  - Palpitations [Unknown]
  - Heart rate irregular [Unknown]
  - Nausea [Unknown]
  - Malaise [Unknown]
  - Decreased appetite [Unknown]
  - Haemorrhoids [Unknown]
  - Pulmonary arterial pressure increased [Unknown]
  - Dyspepsia [Unknown]
  - Impaired healing [Unknown]
  - Chest pain [Unknown]
  - Cardiac failure congestive [Unknown]
  - Cardiac disorder [Unknown]
  - Heart rate increased [Unknown]
  - Pulmonary arterial hypertension [Unknown]
  - Blood glucose decreased [Unknown]
  - Haematochezia [Unknown]

NARRATIVE: CASE EVENT DATE: 201608
